FAERS Safety Report 8758949 (Version 1)
Quarter: 2012Q4

REPORT INFORMATION
  Report Type: 
  Country: US (occurrence: US)
  Receive Date: 20120829
  Receipt Date: 20120829
  Transmission Date: 20130627
  Serious: Yes (Hospitalization)
  Sender: FDA-Public Use
  Company Number: US-SANOFI-AVENTIS-2012SA059660

PATIENT
  Sex: Male

DRUGS (6)
  1. GLYBURIDE [Suspect]
     Indication: TYPE II DIABETES MELLITUS
     Route: 065
     Dates: end: 2012
  2. LANTUS [Suspect]
     Indication: TYPE II DIABETES MELLITUS
     Dosage: Dose:16 unit(s)
     Route: 058
     Dates: start: 20120508
  3. SOLOSTAR [Suspect]
     Indication: TYPE II DIABETES MELLITUS
     Dates: start: 20120508
  4. ALLOPURINOL [Concomitant]
     Indication: GOUT
  5. SIMVASTATIN [Concomitant]
     Indication: PROPHYLAXIS
  6. HUMALOG [Concomitant]
     Dosage: sliding scale if sugars}141

REACTIONS (5)
  - Hip fracture [Unknown]
  - Kidney infection [Unknown]
  - Asthenia [Unknown]
  - Pyrexia [Unknown]
  - Renal failure [Unknown]
